FAERS Safety Report 20834004 (Version 1)
Quarter: 2022Q2

REPORT INFORMATION
  Report Type: Spontaneous
  Country: US (occurrence: US)
  Receive Date: 20220516
  Receipt Date: 20220516
  Transmission Date: 20220721
  Serious: Yes (Other)
  Sender: FDA-Public Use
  Company Number: US-009507513-2205USA003923

PATIENT
  Sex: Female

DRUGS (3)
  1. KEYTRUDA [Suspect]
     Active Substance: PEMBROLIZUMAB
     Indication: Endometrial cancer
     Dosage: UNK
     Dates: start: 202107, end: 202202
  2. LENVATINIB MESYLATE [Suspect]
     Active Substance: LENVATINIB MESYLATE
     Indication: Endometrial cancer
     Dosage: UNK
     Route: 048
     Dates: start: 202107, end: 202202
  3. LENVATINIB MESYLATE [Suspect]
     Active Substance: LENVATINIB MESYLATE
     Dosage: 20 MG DAILY
     Route: 048
     Dates: start: 20220413

REACTIONS (4)
  - Cellulitis [Recovering/Resolving]
  - Thyroid function test abnormal [Not Recovered/Not Resolved]
  - Onychomadesis [Recovering/Resolving]
  - Liver function test increased [Not Recovered/Not Resolved]
